FAERS Safety Report 5746462-9 (Version None)
Quarter: 2008Q2

REPORT INFORMATION
  Report Type: 
  Country: None (occurrence: None)
  Receive Date: 20080522
  Receipt Date: 20080514
  Transmission Date: 20081010
  Serious: Yes (Hospitalization, Other)
  Sender: FDA-Public Use
  Company Number: B0520044A

PATIENT
  Age: 41 Year
  Sex: Male

DRUGS (4)
  1. COMBIVIR [Suspect]
     Indication: HIV INFECTION
     Route: 048
  2. KALETRA [Suspect]
     Indication: HIV INFECTION
     Route: 048
     Dates: start: 20061001
  3. RIBAVIRIN [Suspect]
     Dosage: 800MG PER DAY
     Route: 048
     Dates: start: 20061011, end: 20061220
  4. PEGASYS [Suspect]
     Dosage: 180MCG PER DAY
     Route: 048
     Dates: start: 20061011, end: 20061215

REACTIONS (1)
  - POLYNEUROPATHY [None]
